FAERS Safety Report 7965827-8 (Version None)
Quarter: 2011Q4

REPORT INFORMATION
  Report Type: 
  Country: None (occurrence: None)
  Receive Date: 20111121
  Receipt Date: 20110926
  Transmission Date: 20120403
  Serious: No
  Sender: FDA-Public Use
  Company Number: 1000024206

PATIENT
  Age: 62 Year
  Sex: Male

DRUGS (11)
  1. SIMVASTATIN [Concomitant]
  2. DEXEDRINE (DEXAMFETAMINE SULFATE) (DEXAMFETAMINE SULFATE) [Concomitant]
  3. STELAZINE [Concomitant]
  4. MELOXICAM [Concomitant]
  5. VIIBRYD [Suspect]
     Indication: DEPRESSION
     Dosage: 10;20;40 MG (10 MG, 1 IN 1 D), ORAL
     Route: 048
     Dates: start: 20110911, end: 20110917
  6. VIIBRYD [Suspect]
     Indication: DEPRESSION
     Dosage: 10;20;40 MG (10 MG, 1 IN 1 D), ORAL
     Route: 048
     Dates: start: 20110925
  7. VIIBRYD [Suspect]
     Indication: DEPRESSION
     Dosage: 10;20;40 MG (10 MG, 1 IN 1 D), ORAL
     Route: 048
     Dates: start: 20110918, end: 20110924
  8. PROZAC [Suspect]
     Indication: MIGRAINE
     Dates: start: 19550101, end: 20110910
  9. VALIUM [Concomitant]
  10. LISINOPRIL [Concomitant]
  11. PROSCAR [Concomitant]

REACTIONS (3)
  - FATIGUE [None]
  - MIGRAINE [None]
  - INSOMNIA [None]
